FAERS Safety Report 24322708 (Version 1)
Quarter: 2024Q3

REPORT INFORMATION
  Report Type: Other
  Country: GB (occurrence: GB)
  Receive Date: 20240916
  Receipt Date: 20240916
  Transmission Date: 20241017
  Serious: Yes (Other)
  Sender: MACLEODS
  Company Number: None

PATIENT

DRUGS (1)
  1. TAMSULOSIN [Suspect]
     Active Substance: TAMSULOSIN
     Indication: Nephrolithiasis
     Route: 048

REACTIONS (6)
  - Blepharitis [Recovering/Resolving]
  - Lymphadenopathy [Recovered/Resolved]
  - Lacrimation increased [Recovering/Resolving]
  - Oropharyngeal pain [Recovered/Resolved]
  - Pain in extremity [Recovered/Resolved]
  - Intraocular pressure test [Recovered/Resolved]
